FAERS Safety Report 10068615 (Version 2)
Quarter: 2014Q2

REPORT INFORMATION
  Report Type: Report from Study
  Country: JP (occurrence: JP)
  Receive Date: 20140409
  Receipt Date: 20140613
  Transmission Date: 20141212
  Serious: Yes (Hospitalization)
  Sender: FDA-Public Use
  Company Number: JP-SHIRE-JP201401092

PATIENT
  Age: 58 Year
  Sex: Female

DRUGS (12)
  1. 405 (LANTHANUM CARBONATE) [Suspect]
     Indication: HYPERPHOSPHATAEMIA
     Dosage: 750 MG, UNKNOWN
     Route: 048
     Dates: start: 20090414, end: 20110523
  2. REGPARA [Suspect]
     Indication: HYPERPARATHYROIDISM SECONDARY
     Dosage: 25 MG, UNKNOWN
     Route: 048
     Dates: start: 20091119
  3. RENAGEL                            /01459901/ [Concomitant]
     Indication: HYPERPHOSPHATAEMIA
     Dosage: 2250 MG, UNKNOWN
     Route: 048
     Dates: end: 20090525
  4. RENAGEL                            /01459901/ [Concomitant]
     Dosage: 750 MG, UNKNOWN
     Route: 048
     Dates: start: 20090526, end: 20090821
  5. RENAGEL                            /01459901/ [Concomitant]
     Dosage: 1500 MG, UNKNOWN
     Route: 048
     Dates: start: 20090822
  6. OXAROL [Concomitant]
     Indication: PRODUCT USED FOR UNKNOWN INDICATION
     Dosage: 10 ?G, 1X/WEEK
     Route: 041
     Dates: start: 20071007
  7. THYRADIN [Concomitant]
     Indication: PRODUCT USED FOR UNKNOWN INDICATION
     Dosage: 100 ?G, UNKNOWN
     Route: 048
  8. EPADEL                             /01682401/ [Concomitant]
     Indication: PRODUCT USED FOR UNKNOWN INDICATION
     Dosage: 900 MG, UNKNOWN
     Route: 048
  9. GASMOTIN [Concomitant]
     Indication: NAUSEA
     Dosage: 15 MG, UNKNOWN
     Route: 048
  10. GASMOTIN [Concomitant]
     Dosage: 5 MG, UNKNOWN
     Route: 048
     Dates: start: 20100501
  11. PRONON [Concomitant]
     Indication: PRODUCT USED FOR UNKNOWN INDICATION
     Dosage: 300 MG, UNKNOWN
     Route: 048
  12. TAKEPRON [Concomitant]
     Indication: PRODUCT USED FOR UNKNOWN INDICATION
     Dosage: 15 MG, UNKNOWN
     Route: 048

REACTIONS (2)
  - Peritonitis [Recovered/Resolved]
  - Rectal perforation [Recovered/Resolved]
